FAERS Safety Report 9892242 (Version 2)
Quarter: 2014Q1

REPORT INFORMATION
  Report Type: Spontaneous
  Country: US (occurrence: US)
  Receive Date: 20140212
  Receipt Date: 20140212
  Transmission Date: 20141002
  Serious: No
  Sender: FDA-Public Use
  Company Number: US-MALLINCKRODT-T201304986

PATIENT
  Age: 59 Year
  Sex: Male
  Weight: 83.9 kg

DRUGS (16)
  1. FENTANYL TRANSDERMAL SYSTEM [Suspect]
     Indication: HEADACHE
     Dosage: 25 UG/HR, Q72H
     Route: 062
     Dates: start: 20131111
  2. OXYCONTIN [Concomitant]
     Dosage: 20 MG, BID
     Dates: end: 20131111
  3. INDERAL [Concomitant]
     Indication: HEADACHE
     Dosage: UNK
  4. PENICILLIN                         /00000901/ [Concomitant]
     Indication: PROPHYLAXIS
     Dosage: UNK
  5. PROGRAF [Concomitant]
     Indication: PROPHYLAXIS AGAINST TRANSPLANT REJECTION
     Dosage: UNK
  6. PLAVIX [Concomitant]
     Indication: ANTICOAGULANT THERAPY
     Dosage: UNK
  7. LISINOPRIL [Concomitant]
     Indication: HYPERTENSION
     Dosage: UNK
  8. PRAVASTATIN [Concomitant]
     Indication: BLOOD CHOLESTEROL INCREASED
     Dosage: UNK
  9. SYNTHROID [Concomitant]
     Indication: HYPOTHYROIDISM
     Dosage: UNK
  10. VITAMIN D                          /00107901/ [Concomitant]
     Dosage: UNK
  11. PREVACID [Concomitant]
     Indication: GASTROOESOPHAGEAL REFLUX DISEASE
     Dosage: UNK
  12. PROTONIX [Concomitant]
     Indication: GASTROOESOPHAGEAL REFLUX DISEASE
     Dosage: UNK
  13. ARICEPT [Concomitant]
     Indication: DEMENTIA
     Dosage: UNK
  14. KEPPRA [Concomitant]
     Indication: EPILEPSY
     Dosage: UNK
  15. FISH OIL [Concomitant]
     Dosage: UNK
  16. CARBATROL [Concomitant]
     Indication: CONVULSION
     Dosage: UNK

REACTIONS (6)
  - Oesophageal oedema [Not Recovered/Not Resolved]
  - Pruritus [Recovering/Resolving]
  - Rash [Recovering/Resolving]
  - Palpitations [Not Recovered/Not Resolved]
  - Dyspepsia [Not Recovered/Not Resolved]
  - Drug ineffective [Not Recovered/Not Resolved]
